FAERS Safety Report 7307554-6 (Version None)
Quarter: 2011Q1

REPORT INFORMATION
  Report Type: 
  Country: None (occurrence: None)
  Receive Date: 20110119
  Receipt Date: 20100712
  Transmission Date: 20110831
  Serious: Yes (Death)
  Sender: FDA-Public Use
  Company Number: A-US2010-38095

PATIENT
  Age: 52 Year
  Sex: Female

DRUGS (1)
  1. TRACLEER [Suspect]
     Indication: PULMONARY ARTERIAL HYPERTENSION
     Dosage: ORAL
     Route: 048
     Dates: start: 20100614, end: 20100628

REACTIONS (5)
  - INTERSTITIAL LUNG DISEASE [None]
  - LUNG DISORDER [None]
  - CHRONIC RESPIRATORY FAILURE [None]
  - OXYGEN CONSUMPTION INCREASED [None]
  - PULMONARY ARTERIAL HYPERTENSION [None]
